FAERS Safety Report 9778901 (Version 1)
Quarter: 2013Q4

REPORT INFORMATION
  Report Type: Spontaneous
  Country: FR (occurrence: FR)
  Receive Date: 20131223
  Receipt Date: 20131223
  Transmission Date: 20140711
  Serious: Yes (Other)
  Sender: FDA-Public Use
  Company Number: FR-PFIZER INC-2013360295

PATIENT
  Age: 56 Year
  Sex: Female

DRUGS (2)
  1. TAHOR [Suspect]
     Dosage: 20 MG, 1X/DAY
     Route: 048
     Dates: end: 20131110
  2. FUCIDINE [Interacting]
     Indication: BURSITIS
     Dosage: 500 MG, 3X/DAY
     Route: 048
     Dates: start: 20131106, end: 20131113

REACTIONS (4)
  - Drug interaction [Recovered/Resolved]
  - Myalgia [Recovered/Resolved]
  - Asthenia [Recovered/Resolved]
  - Hepatocellular injury [Recovered/Resolved]
